FAERS Safety Report 9853292 (Version 2)
Quarter: 2014Q1

REPORT INFORMATION
  Report Type: Report from Study
  Country: US (occurrence: US)
  Receive Date: 20140129
  Receipt Date: 20140226
  Transmission Date: 20141002
  Serious: Yes (Hospitalization)
  Sender: FDA-Public Use
  Company Number: US-ACTELION-A-US2014-94040

PATIENT
  Age: 39 Year
  Sex: Female

DRUGS (5)
  1. VELETRI [Suspect]
     Indication: PULMONARY ARTERIAL HYPERTENSION
     Dosage: 33 NG/KG, PER MIN
     Route: 042
  2. VELETRI [Suspect]
     Dosage: 33.5 NG/KG, PER MIN
     Route: 042
     Dates: start: 20110823
  3. OPSUMIT [Concomitant]
     Indication: PULMONARY ARTERIAL HYPERTENSION
     Route: 048
  4. ADCIRCA [Concomitant]
  5. LETAIRIS [Concomitant]

REACTIONS (2)
  - Urinary tract infection [Recovered/Resolved]
  - Blood potassium decreased [Unknown]
